FAERS Safety Report 14291026 (Version 3)
Quarter: 2017Q4

REPORT INFORMATION
  Report Type: Spontaneous
  Country: ES (occurrence: ES)
  Receive Date: 20171215
  Receipt Date: 20171222
  Transmission Date: 20180321
  Serious: Yes (Other)
  Sender: FDA-Public Use
  Company Number: ES-PFIZER INC-2017535328

PATIENT
  Age: 82 Year
  Sex: Female

DRUGS (4)
  1. SEGURIL [Concomitant]
     Active Substance: FUROSEMIDE
     Indication: HYPERTENSIVE HEART DISEASE
     Dosage: 40 MG, ALTERNATE DAY; 1 TABLET EVERY OTHER DAY
     Route: 048
     Dates: start: 2017, end: 20170616
  2. SPIRONOLACTONE. [Interacting]
     Active Substance: SPIRONOLACTONE
     Indication: HYPERTENSIVE HEART DISEASE
     Dosage: UNK, DAILY; 1-0-0
     Route: 048
     Dates: start: 2017, end: 20170616
  3. RAMIPRIL. [Suspect]
     Active Substance: RAMIPRIL
     Indication: HYPERTENSIVE HEART DISEASE
     Dosage: 2.5 MG, DAILY; 1-0-0
     Route: 048
     Dates: start: 2017
  4. EPLERENONE. [Interacting]
     Active Substance: EPLERENONE
     Indication: HYPERTENSIVE HEART DISEASE
     Dosage: 25 G, 1X/DAY; 1-0-0
     Route: 048
     Dates: start: 2017

REACTIONS (2)
  - Hyperkalaemia [Recovering/Resolving]
  - Drug interaction [Unknown]

NARRATIVE: CASE EVENT DATE: 201706
